FAERS Safety Report 20193301 (Version 1)
Quarter: 2021Q4

REPORT INFORMATION
  Report Type: Spontaneous
  Country: SE (occurrence: SE)
  Receive Date: 20211216
  Receipt Date: 20211216
  Transmission Date: 20220304
  Serious: Yes (Hospitalization)
  Sender: FDA-Public Use
  Company Number: None

PATIENT
  Age: 24 Year
  Sex: Female
  Weight: 50 kg

DRUGS (2)
  1. CONCERTA [Suspect]
     Active Substance: METHYLPHENIDATE HYDROCHLORIDE
     Indication: Attention deficit hyperactivity disorder
     Route: 048
     Dates: start: 20200815, end: 202011
  2. CONCERTA [Suspect]
     Active Substance: METHYLPHENIDATE HYDROCHLORIDE
     Route: 048
     Dates: start: 202011

REACTIONS (9)
  - Pyogenic granuloma [Recovered/Resolved with Sequelae]
  - Panic reaction [Recovered/Resolved]
  - Migraine [Not Recovered/Not Resolved]
  - Feeling cold [Not Recovered/Not Resolved]
  - Withdrawal syndrome [Recovered/Resolved]
  - Loss of libido [Not Recovered/Not Resolved]
  - Tension headache [Not Recovered/Not Resolved]
  - Vision blurred [Not Recovered/Not Resolved]
  - Dizziness [Not Recovered/Not Resolved]

NARRATIVE: CASE EVENT DATE: 20201201
